FAERS Safety Report 9494996 (Version 1)
Quarter: 2013Q3

REPORT INFORMATION
  Report Type: Spontaneous
  Country: US (occurrence: None)
  Receive Date: 20130828
  Receipt Date: 20130828
  Transmission Date: 20140515
  Serious: Yes (Other)
  Sender: FDA-Public Use
  Company Number: JPI-P-032994

PATIENT
  Age: 53 Year
  Sex: Female

DRUGS (1)
  1. XYREM [Suspect]
     Indication: NARCOLEPSY
     Dosage: (3 GM, 2 IN 1 D)
     Route: 048
     Dates: start: 20070913, end: 2007

REACTIONS (4)
  - Salpingo-oophorectomy [None]
  - Artificial menopause [None]
  - Post procedural infection [None]
  - Bladder neck suspension [None]
